FAERS Safety Report 10912501 (Version 1)
Quarter: 2015Q1

REPORT INFORMATION
  Report Type: Spontaneous
  Country: US (occurrence: None)
  Receive Date: 20150310
  Receipt Date: 20150310
  Transmission Date: 20150721
  Serious: Yes (Other)
  Sender: FDA-Public Use
  Company Number: BD-2015-0219

PATIENT
  Age: 2 Month
  Sex: Male
  Weight: 3.6 kg

DRUGS (2)
  1. MORPHINE SULFATE (MORPHINE SULFATE) UNKNOWN [Suspect]
     Active Substance: MORPHINE SULFATE
     Indication: PRODUCT USED FOR UNKNOWN INDICATION
     Dosage: 0.36 MG, ONE TIME DOSE AT 2348, INTRAVENOUS
     Route: 042
  2. MIDAZOLAM [Suspect]
     Active Substance: MIDAZOLAM\MIDAZOLAM HYDROCHLORIDE
     Indication: PRODUCT USED FOR UNKNOWN INDICATION
     Dosage: 0.36 MG, ONE TIME DOSE AT 2348, INTRAVENOUS
     Route: 042

REACTIONS (2)
  - Therapeutic response unexpected [None]
  - Lethargy [None]
